FAERS Safety Report 14695264 (Version 10)
Quarter: 2019Q1

REPORT INFORMATION
  Report Type: Spontaneous
  Country: US (occurrence: US)
  Receive Date: 20180329
  Receipt Date: 20190308
  Transmission Date: 20190417
  Serious: Yes (Hospitalization)
  Sender: FDA-Public Use
  Company Number: US-ACTELION-A-NJ2018-169360

PATIENT
  Age: 51 Year
  Sex: Female
  Weight: 66.67 kg

DRUGS (6)
  1. VELETRI [Suspect]
     Active Substance: EPOPROSTENOL
     Dosage: 11 NG/KG, PER MIN
     Route: 042
     Dates: start: 201710
  2. ELIQUIS [Concomitant]
     Active Substance: APIXABAN
  3. DILTIAZEM. [Concomitant]
     Active Substance: DILTIAZEM
  4. VELETRI [Suspect]
     Active Substance: EPOPROSTENOL
     Indication: PULMONARY ARTERIAL HYPERTENSION
     Dosage: 21 NG/KG, PER MIN
     Route: 042
  5. VELETRI [Suspect]
     Active Substance: EPOPROSTENOL
     Dosage: 19 NG/KG, PER MIN
     Route: 042
  6. OPSUMIT [Suspect]
     Active Substance: MACITENTAN
     Indication: PULMONARY ARTERIAL HYPERTENSION
     Dosage: 10 MG, QD
     Route: 048

REACTIONS (23)
  - Staphylococcal infection [Recovered/Resolved]
  - Pain in jaw [Not Recovered/Not Resolved]
  - Arrhythmia [Recovered/Resolved]
  - Night sweats [Recovered/Resolved]
  - Diarrhoea [Not Recovered/Not Resolved]
  - Chills [Recovered/Resolved]
  - Dyspnoea exertional [Recovering/Resolving]
  - Device dislocation [Unknown]
  - Heart rate irregular [Unknown]
  - Gastric disorder [Unknown]
  - Pallor [Unknown]
  - Abdominal pain upper [Not Recovered/Not Resolved]
  - Tachycardia [Recovered/Resolved]
  - Vascular device infection [Recovered/Resolved]
  - Abdominal discomfort [Not Recovered/Not Resolved]
  - Catheter management [Unknown]
  - Atrial fibrillation [Unknown]
  - Hypertension [Unknown]
  - Sepsis [Recovered/Resolved]
  - Palpitations [Unknown]
  - Atrial flutter [Recovered/Resolved]
  - Oxygen saturation decreased [Recovered/Resolved]
  - Pyrexia [Recovered/Resolved]

NARRATIVE: CASE EVENT DATE: 20180729
